FAERS Safety Report 16136249 (Version 1)
Quarter: 2019Q1

REPORT INFORMATION
  Report Type: Spontaneous
  Country: FR (occurrence: FR)
  Receive Date: 20190329
  Receipt Date: 20190329
  Transmission Date: 20190418
  Serious: Yes (Death, Other)
  Sender: FDA-Public Use
  Company Number: FR-009507513-1903FRA011890

PATIENT

DRUGS (2)
  1. CUBICIN [Suspect]
     Active Substance: DAPTOMYCIN
     Indication: ENDOCARDITIS
     Dosage: 12 MG/KG EVERY 24 HOURS
  2. CUBICIN [Suspect]
     Active Substance: DAPTOMYCIN
     Dosage: 10 TO 12 MG/KG EVERY 24 HOURS

REACTIONS (3)
  - Prescribed overdose [Unknown]
  - Cardiac failure [Fatal]
  - Incorrect dose administered [Unknown]
